FAERS Safety Report 12659502 (Version 3)
Quarter: 2017Q1

REPORT INFORMATION
  Report Type: Spontaneous
  Country: US (occurrence: US)
  Receive Date: 20160817
  Receipt Date: 20170117
  Transmission Date: 20170428
  Serious: No
  Sender: FDA-Public Use
  Company Number: US-GLAXOSMITHKLINE-US2016118163

PATIENT
  Age: 48 Year
  Sex: Female

DRUGS (1)
  1. LAMICTAL XR [Suspect]
     Active Substance: LAMOTRIGINE
     Indication: EPILEPSY
     Dosage: 300 MG, QD
     Route: 048
     Dates: start: 200109

REACTIONS (13)
  - Confusional state [Recovered/Resolved]
  - Product quality issue [Unknown]
  - Alopecia [Not Recovered/Not Resolved]
  - Nausea [Not Recovered/Not Resolved]
  - Blood pressure increased [Recovered/Resolved]
  - Feeling abnormal [Not Recovered/Not Resolved]
  - Communication disorder [Unknown]
  - Emergency care [Recovered/Resolved]
  - Heart rate increased [Recovered/Resolved]
  - Dizziness [Not Recovered/Not Resolved]
  - Dehydration [Recovered/Resolved]
  - Dry mouth [Recovered/Resolved]
  - Exposure during pregnancy [Recovered/Resolved]

NARRATIVE: CASE EVENT DATE: 2001
